FAERS Safety Report 7597065-5 (Version None)
Quarter: 2011Q3

REPORT INFORMATION
  Report Type: 
  Country: None (occurrence: None)
  Receive Date: 20110708
  Receipt Date: 20110704
  Transmission Date: 20111222
  Serious: Yes (Hospitalization)
  Sender: FDA-Public Use
  Company Number: DK-PFIZER INC-2011150579

PATIENT
  Age: 58 Year
  Sex: Female

DRUGS (2)
  1. SUNITINIB MALATE [Suspect]
     Dosage: 37.5 MG, FOR 41 DAYS
     Dates: end: 20100201
  2. SUNITINIB MALATE [Suspect]
     Indication: METASTATIC RENAL CELL CARCINOMA
     Dosage: 50 MG, FOR 28 DAYS
     Dates: start: 20090728

REACTIONS (1)
  - PERICARDITIS [None]
